FAERS Safety Report 12250272 (Version 1)
Quarter: 2016Q2

REPORT INFORMATION
  Report Type: Spontaneous
  Country: GB (occurrence: GB)
  Receive Date: 20160408
  Receipt Date: 20160408
  Transmission Date: 20160815
  Serious: Yes (Hospitalization)
  Sender: FDA-Public Use
  Company Number: GB-TEVA-648996ACC

PATIENT
  Age: 91 Year
  Sex: Female

DRUGS (2)
  1. ASPIRIN. [Suspect]
     Active Substance: ASPIRIN
     Indication: CARDIOVASCULAR EVENT PROPHYLAXIS
     Dosage: 75 MILLIGRAM DAILY;
     Route: 048
     Dates: end: 20160314
  2. ALENDRONIC ACID [Suspect]
     Active Substance: ALENDRONIC ACID
     Indication: OSTEOPOROSIS
     Route: 048
     Dates: end: 20160314

REACTIONS (3)
  - Anaemia [Unknown]
  - Upper gastrointestinal haemorrhage [Recovered/Resolved with Sequelae]
  - Myocardial infarction [Unknown]

NARRATIVE: CASE EVENT DATE: 20160312
